FAERS Safety Report 20567341 (Version 1)
Quarter: 2022Q1

REPORT INFORMATION
  Report Type: Spontaneous
  Country: CN (occurrence: CN)
  Receive Date: 20220308
  Receipt Date: 20220308
  Transmission Date: 20220423
  Serious: Yes (Hospitalization)
  Sender: FDA-Public Use
  Company Number: CN-SCIEGENP-2022SCLIT00170

PATIENT
  Age: 70 Year
  Sex: Male

DRUGS (4)
  1. PRAMIPEXOLE DIHYDROCHLORIDE [Suspect]
     Active Substance: PRAMIPEXOLE DIHYDROCHLORIDE
     Indication: Parkinson^s disease
     Dosage: SIX YEARS AGO
     Route: 065
     Dates: start: 2016
  2. PRAMIPEXOLE DIHYDROCHLORIDE [Suspect]
     Active Substance: PRAMIPEXOLE DIHYDROCHLORIDE
     Dosage: TITRATED UP TO 1.5 MG/D
     Route: 065
  3. PRAMIPEXOLE DIHYDROCHLORIDE [Suspect]
     Active Substance: PRAMIPEXOLE DIHYDROCHLORIDE
     Dosage: DOSE OF PRAMIPEXOLE WAS REDUCED TO 50% OF THE CURRENT DOSAGE
     Route: 065
  4. SELEGILINE [Concomitant]
     Active Substance: SELEGILINE
     Indication: Parkinson^s disease
     Route: 065
     Dates: start: 2016

REACTIONS (3)
  - Jealous delusion [Recovering/Resolving]
  - Impulse-control disorder [Recovering/Resolving]
  - Dementia [Recovering/Resolving]
